FAERS Safety Report 6735470-7 (Version None)
Quarter: 2010Q2

REPORT INFORMATION
  Report Type: 
  Country: None (occurrence: None)
  Receive Date: 20100521
  Receipt Date: 20100517
  Transmission Date: 20101027
  Serious: Yes (Death, Hospitalization, Other)
  Sender: FDA-Public Use
  Company Number: JP-BAYER-201011360BYL

PATIENT
  Age: 56 Year
  Sex: Female
  Weight: 46 kg

DRUGS (12)
  1. NEXAVAR [Suspect]
     Indication: HEPATIC NEOPLASM MALIGNANT
     Dosage: TOTAL DAILY DOSE: 400 MG  UNIT DOSE: 200 MG
     Route: 048
     Dates: start: 20091221, end: 20091228
  2. VOLTAREN [Suspect]
     Indication: PAIN MANAGEMENT
     Dosage: 25MG/2-3 TIMES/DAY
     Route: 054
  3. RANDA [Suspect]
     Indication: HEPATIC NEOPLASM MALIGNANT
     Route: 041
     Dates: start: 20091021, end: 20091126
  4. LASIX [Concomitant]
     Dosage: UNIT DOSE: 20 MG
     Route: 048
  5. ALDACTONE [Concomitant]
     Dosage: UNIT DOSE: 25 MG
     Route: 048
  6. PREDNISOLONE [Concomitant]
     Dosage: UNIT DOSE: 5 MG
     Route: 048
  7. MAGMITT [Concomitant]
     Dosage: UNIT DOSE: 330 MG
     Route: 048
  8. GASTER D [Concomitant]
     Dosage: UNIT DOSE: 20 MG
     Route: 048
  9. MYSLEE [Concomitant]
     Dosage: UNIT DOSE: 10 MG
     Route: 048
  10. URSO 250 [Concomitant]
     Dosage: UNIT DOSE: 100 MG
     Route: 048
  11. UREPEARL [Concomitant]
     Route: 061
     Dates: start: 20091221
  12. LOXONIN [Concomitant]
     Dosage: SINCE BEFORE ADMINISTRATION
     Route: 048

REACTIONS (7)
  - ALANINE AMINOTRANSFERASE INCREASED [None]
  - ASPARTATE AMINOTRANSFERASE INCREASED [None]
  - HEPATIC ENCEPHALOPATHY [None]
  - HEPATIC FUNCTION ABNORMAL [None]
  - HEPATIC NEOPLASM MALIGNANT [None]
  - MELAENA [None]
  - PALMAR-PLANTAR ERYTHRODYSAESTHESIA SYNDROME [None]
